FAERS Safety Report 22070556 (Version 1)
Quarter: 2023Q1

REPORT INFORMATION
  Report Type: Spontaneous
  Country: PL (occurrence: PL)
  Receive Date: 20230307
  Receipt Date: 20230307
  Transmission Date: 20230418
  Serious: Yes (Other)
  Sender: FDA-Public Use
  Company Number: PL-009507513-2303POL001299

PATIENT
  Age: 47 Year
  Sex: Female

DRUGS (1)
  1. PEMBROLIZUMAB [Suspect]
     Active Substance: PEMBROLIZUMAB
     Indication: Metastatic malignant melanoma
     Dosage: 400 MILLIGRAM, EVERY 6 WEEKS
     Dates: start: 2020, end: 2023

REACTIONS (5)
  - Malignant neoplasm progression [Unknown]
  - Hepatotoxicity [Unknown]
  - Tumour invasion [Unknown]
  - Goitre [Recovered/Resolved]
  - Ovarian enlargement [Unknown]

NARRATIVE: CASE EVENT DATE: 20210222
